FAERS Safety Report 5702790-4 (Version None)
Quarter: 2008Q2

REPORT INFORMATION
  Report Type: 
  Country: None (occurrence: None)
  Receive Date: 20080411
  Receipt Date: 20080407
  Transmission Date: 20081010
  Serious: Yes (Other)
  Sender: FDA-Public Use
  Company Number: D0056837A

PATIENT
  Age: 14 Year
  Sex: Male

DRUGS (1)
  1. VIANI [Suspect]
     Route: 055
     Dates: start: 20070101

REACTIONS (2)
  - CONCUSSION [None]
  - SUICIDAL IDEATION [None]
